FAERS Safety Report 5321866-7 (Version None)
Quarter: 2007Q2

REPORT INFORMATION
  Report Type: 
  Country: None (occurrence: None)
  Receive Date: 20070510
  Receipt Date: 20070503
  Transmission Date: 20071010
  Serious: Yes (Hospitalization)
  Sender: FDA-Public Use
  Company Number: CA-ROXANE LABORATORIES, INC-2007-BP-06059RO

PATIENT
  Age: 3 Month
  Sex: Male

DRUGS (3)
  1. LIDOCAINE [Suspect]
     Indication: NERVE BLOCK
     Dosage: 7.6 MG/KG (EST. FROM PK)
  2. LORAZEPAM [Suspect]
     Indication: GRAND MAL CONVULSION
  3. DIAZEPAM [Suspect]
     Indication: GRAND MAL CONVULSION

REACTIONS (3)
  - ACCIDENTAL OVERDOSE [None]
  - DRUG INEFFECTIVE [None]
  - GRAND MAL CONVULSION [None]
